FAERS Safety Report 5298378-2 (Version None)
Quarter: 2007Q2

REPORT INFORMATION
  Report Type: 
  Country: None (occurrence: None)
  Receive Date: 20070409
  Receipt Date: 20070328
  Transmission Date: 20071010
  Serious: Yes (Hospitalization)
  Sender: FDA-Public Use
  Company Number: WAES 0704USA00080

PATIENT
  Age: 37 Year
  Sex: Male

DRUGS (5)
  1. DECADRON [Suspect]
     Indication: MOUNTAIN SICKNESS ACUTE
     Dosage: SEE IMAGE
     Route: 048
  2. DECADRON [Suspect]
     Indication: PROPHYLAXIS
     Dosage: SEE IMAGE
     Route: 048
  3. DECADRON [Suspect]
     Indication: HEADACHE
     Dosage: PO
     Route: 048
  4. ASPIRIN [Suspect]
     Indication: HEADACHE
     Dosage: 0.5 GM/1X
  5. LIQ ALCOHOL [Suspect]
     Dosage: 300 MG/1X PO
     Route: 048

REACTIONS (9)
  - BLOOD PRESSURE DECREASED [None]
  - DRUG EFFECT DECREASED [None]
  - DRUG INEFFECTIVE [None]
  - DUODENAL ULCER [None]
  - FATIGUE [None]
  - GASTRIC HAEMORRHAGE [None]
  - GASTRIC ULCER [None]
  - GASTRITIS EROSIVE [None]
  - HAEMOGLOBIN DECREASED [None]
